FAERS Safety Report 23650345 (Version 1)
Quarter: 2024Q1

REPORT INFORMATION
  Report Type: Spontaneous
  Country: US (occurrence: None)
  Receive Date: 20240320
  Receipt Date: 20240320
  Transmission Date: 20240410
  Serious: No
  Sender: FDA-Public Use
  Company Number: US-ROCHE-3425768

PATIENT

DRUGS (2)
  1. VABYSMO [Suspect]
     Active Substance: FARICIMAB\FARICIMAB-SVOA
     Indication: Neovascular age-related macular degeneration
     Dosage: COMES IN A VIAL AND WITH A ^1CC OR 1ML^ SYRINGE ;ONGOING: NO
     Route: 050
  2. EYLEA [Concomitant]
     Active Substance: AFLIBERCEPT
     Indication: Neovascular age-related macular degeneration

REACTIONS (2)
  - Keratic precipitates [Unknown]
  - Oedema [Unknown]

NARRATIVE: CASE EVENT DATE: 20230101
